FAERS Safety Report 8292325-7 (Version None)
Quarter: 2012Q2

REPORT INFORMATION
  Report Type: 
  Country: None (occurrence: None)
  Receive Date: 20120417
  Receipt Date: 20120412
  Transmission Date: 20120825
  Serious: No
  Sender: FDA-Public Use
  Company Number: US-BAYER-2012-036166

PATIENT
  Age: 80 Year
  Sex: Male
  Weight: 83.9 kg

DRUGS (6)
  1. VITAMIN B-12 [Concomitant]
  2. METOPROLOL TARTRATE [Concomitant]
  3. ALEVE (CAPLET) [Suspect]
     Indication: ARTHRITIS
     Dosage: 2 TABLETS AS NEEDED - 130 COUNT
     Route: 048
  4. ASPIRIN [Concomitant]
  5. VITAMIN FOR JOINTS [Concomitant]
  6. LISINOPRIL [Concomitant]

REACTIONS (3)
  - SOMNOLENCE [None]
  - FEELING ABNORMAL [None]
  - MALAISE [None]
